FAERS Safety Report 15165634 (Version 1)
Quarter: 2018Q3

REPORT INFORMATION
  Report Type: Spontaneous
  Country: US (occurrence: US)
  Receive Date: 20180719
  Receipt Date: 20180719
  Transmission Date: 20181010
  Serious: No
  Sender: FDA-Public Use
  Company Number: US-PRINSTON PHARMACEUTICAL INC.-2018PRN00333

PATIENT
  Age: 74 Year
  Sex: Male

DRUGS (2)
  1. NAVAGE [Concomitant]
  2. LISINOPRIL. [Suspect]
     Active Substance: LISINOPRIL

REACTIONS (4)
  - Circumstance or information capable of leading to medication error [Unknown]
  - Blood pressure increased [Not Recovered/Not Resolved]
  - Blood pressure decreased [Unknown]
  - Product storage error [Not Recovered/Not Resolved]
